FAERS Safety Report 4773867-5 (Version None)
Quarter: 2005Q3

REPORT INFORMATION
  Report Type: 
  Country: None (occurrence: None)
  Receive Date: 20050920
  Receipt Date: 20050822
  Transmission Date: 20060218
  Serious: Yes (Other)
  Sender: FDA-Public Use
  Company Number: GB-ROCHE-415142

PATIENT
  Age: 73 Year
  Sex: Female
  Weight: 148 kg

DRUGS (5)
  1. XENICAL [Suspect]
     Indication: OBESITY
     Route: 048
     Dates: start: 20050802, end: 20050809
  2. FELODIPINE [Concomitant]
     Indication: HYPERTENSION
     Route: 048
     Dates: start: 20010816
  3. METFORMIN HCL [Concomitant]
     Route: 048
     Dates: start: 20030820
  4. FLUPENTIXOL [Concomitant]
     Route: 048
     Dates: start: 20020910
  5. LEVOTHYROXINE SODIUM [Concomitant]
     Indication: HYPOTHYROIDISM
     Route: 048
     Dates: start: 20030903

REACTIONS (3)
  - DYSPNOEA [None]
  - MIDDLE INSOMNIA [None]
  - SUFFOCATION FEELING [None]
